FAERS Safety Report 11656429 (Version 2)
Quarter: 2016Q1

REPORT INFORMATION
  Report Type: Report from Study
  Country: JP (occurrence: JP)
  Receive Date: 20151023
  Receipt Date: 20160318
  Transmission Date: 20160525
  Serious: Yes (Death)
  Sender: FDA-Public Use
  Company Number: JP-EISAI MEDICAL RESEARCH-EC-2015-009987

PATIENT
  Age: 78 Year
  Sex: Female
  Weight: 38 kg

DRUGS (11)
  1. LENVIMA [Suspect]
     Active Substance: LENVATINIB
     Route: 048
     Dates: start: 20150818, end: 20150819
  2. LANSOPRAZOLE. [Concomitant]
     Active Substance: LANSOPRAZOLE
  3. OXYCONTIN [Concomitant]
     Active Substance: OXYCODONE HYDROCHLORIDE
  4. LIPITOR [Concomitant]
     Active Substance: ATORVASTATIN CALCIUM
  5. LOXONIN [Concomitant]
     Active Substance: LOXOPROFEN SODIUM
  6. LEVOTHYROXINE SODIUM HYDRATE [Concomitant]
  7. LENVIMA [Suspect]
     Active Substance: LENVATINIB
     Indication: PAPILLARY THYROID CANCER
     Route: 048
     Dates: start: 20150803, end: 20150804
  8. THYRADIN [Concomitant]
     Active Substance: LEVOTHYROXINE
  9. COLONEL [Concomitant]
     Active Substance: CALCIUM POLYCARBOPHIL
  10. ALESION [Concomitant]
     Active Substance: EPINASTINE HYDROCHLORIDE
  11. SENNOSIDE [Concomitant]
     Active Substance: SENNOSIDES

REACTIONS (1)
  - Gastrointestinal perforation [Fatal]

NARRATIVE: CASE EVENT DATE: 20150819
